FAERS Safety Report 8786175 (Version 1)
Quarter: 2012Q4

REPORT INFORMATION
  Report Type: Report from Study
  Country: IL (occurrence: IL)
  Receive Date: 20120914
  Receipt Date: 20120914
  Transmission Date: 20130627
  Serious: Yes (Hospitalization, Other)
  Sender: FDA-Public Use
  Company Number: IL-GLAXOSMITHKLINE-Z0016202C

PATIENT
  Age: 66 Year
  Sex: Female
  Weight: 73.5 kg

DRUGS (4)
  1. OFATUMUMAB [Suspect]
     Indication: DIFFUSE LARGE B-CELL LYMPHOMA RECURRENT
     Dosage: 1000MG Cyclic
     Route: 042
     Dates: start: 20120617
  2. DEXAMETHASONE [Suspect]
     Indication: DIFFUSE LARGE B-CELL LYMPHOMA RECURRENT
     Dosage: 40MG Every 3 weeks
     Route: 048
     Dates: start: 20120618
  3. CISPLATIN [Suspect]
     Indication: DIFFUSE LARGE B-CELL LYMPHOMA RECURRENT
     Dosage: 100MGM2 Every 3 weeks
     Route: 042
     Dates: start: 20120618
  4. CYTARABINE [Suspect]
     Indication: DIFFUSE LARGE B-CELL LYMPHOMA RECURRENT
     Dosage: 4GM2 Every 3 weeks
     Route: 042
     Dates: start: 20120619

REACTIONS (1)
  - Neutropenia [Recovered/Resolved]
